FAERS Safety Report 10268930 (Version 2)
Quarter: 2014Q2

REPORT INFORMATION
  Report Type: Spontaneous
  Country: US (occurrence: US)
  Receive Date: 20140630
  Receipt Date: 20140630
  Transmission Date: 20141212
  Serious: No
  Sender: FDA-Public Use
  Company Number: US-GILEAD-2014-0104740

PATIENT
  Age: 42 Year
  Sex: Male
  Weight: 81.18 kg

DRUGS (1)
  1. VIREAD [Suspect]
     Indication: HEPATITIS B
     Dosage: 300 MG, QD
     Route: 048
     Dates: start: 20140225, end: 20140321

REACTIONS (1)
  - Blood creatinine increased [Recovered/Resolved]
